FAERS Safety Report 15183369 (Version 2)
Quarter: 2018Q3

REPORT INFORMATION
  Report Type: Spontaneous
  Country: JP (occurrence: JP)
  Receive Date: 20180723
  Receipt Date: 20180816
  Transmission Date: 20181010
  Serious: Yes (Other)
  Sender: FDA-Public Use
  Company Number: JP-SA-2018SA190355

PATIENT
  Age: 82 Year
  Sex: Male
  Weight: 58 kg

DRUGS (15)
  1. ELPLAT [Suspect]
     Active Substance: OXALIPLATIN
     Indication: COLON CANCER
     Dosage: 73 MG, QD
     Route: 041
     Dates: start: 20171221, end: 20171221
  2. ALOXI [Concomitant]
     Active Substance: PALONOSETRON HYDROCHLORIDE
     Dosage: UNK
     Route: 065
     Dates: start: 20171221, end: 20171221
  3. AMLODIPINE [Concomitant]
     Active Substance: AMLODIPINE BESYLATE
     Dosage: UNK
     Route: 065
     Dates: start: 20171214
  4. EMEND [APREPITANT] [Concomitant]
     Dosage: UNK
     Route: 065
     Dates: start: 20171221, end: 20171221
  5. MICARDIS [Concomitant]
     Active Substance: TELMISARTAN
     Dosage: UNK
     Route: 065
     Dates: start: 20171214
  6. PRAVASTATIN SODIUM. [Concomitant]
     Active Substance: PRAVASTATIN SODIUM
     Route: 065
  7. CALCIUM FOLINATE [Suspect]
     Active Substance: LEUCOVORIN CALCIUM
     Indication: COLON CANCER
     Dosage: UNK UNK, UNK
     Route: 048
     Dates: start: 20180130, end: 20180516
  8. DECADRON [DEXAMETHASONE SODIUM PHOSPHATE] [Concomitant]
     Route: 065
  9. LEVOFOLINATE DE CALCIUM WINTHROP [Suspect]
     Active Substance: LEVOLEUCOVORIN CALCIUM
     Indication: COLON CANCER
     Dosage: 292 MG, QD
     Route: 041
     Dates: start: 20171221, end: 20171221
  10. ALLOPURINOL. [Concomitant]
     Active Substance: ALLOPURINOL
     Dosage: UNK
     Route: 065
     Dates: start: 20171214
  11. FLUOROURACIL. [Suspect]
     Active Substance: FLUOROURACIL
     Indication: COLON CANCER
     Dosage: 292 MG, QD
     Route: 040
     Dates: start: 20171221, end: 20171221
  12. FLUOROURACIL. [Suspect]
     Active Substance: FLUOROURACIL
     Dosage: 2334 MG, QOD
     Route: 041
     Dates: start: 20171221, end: 20171221
  13. GASTER [FAMOTIDINE] [Concomitant]
     Dosage: UNK
     Route: 065
     Dates: start: 20171221, end: 20171221
  14. UFT [Suspect]
     Active Substance: TEGAFUR\URACIL
     Indication: COLON CANCER
     Dosage: UNK UNK, UNK
     Route: 048
     Dates: start: 20180130, end: 20180516
  15. GASSAAL [DIMETICONE] [Concomitant]
     Dosage: UNK UNK, UNK
     Route: 065
     Dates: start: 20171214

REACTIONS (4)
  - Subdural haematoma [Recovering/Resolving]
  - Loss of personal independence in daily activities [Unknown]
  - Malaise [Unknown]
  - Nephrotic syndrome [Not Recovered/Not Resolved]

NARRATIVE: CASE EVENT DATE: 20180131
